FAERS Safety Report 25807003 (Version 1)
Quarter: 2025Q3

REPORT INFORMATION
  Report Type: Spontaneous
  Country: US (occurrence: US)
  Receive Date: 20250916
  Receipt Date: 20250916
  Transmission Date: 20251020
  Serious: No
  Sender: MYLAN
  Company Number: US-MYLANLABS-2025M1075949

PATIENT
  Age: 51 Year
  Sex: Male

DRUGS (1)
  1. BREYNA [Suspect]
     Active Substance: BUDESONIDE\FORMOTEROL FUMARATE
     Indication: Product used for unknown indication
     Dosage: 320/9 MICROGRAM, BID (USING HALF DOSES, TWO PUFFS IN THE MORNING AND TWO IN THE EVENING)

REACTIONS (2)
  - Incorrect dose administered [Unknown]
  - Device breakage [Unknown]

NARRATIVE: CASE EVENT DATE: 20250801
